FAERS Safety Report 10256676 (Version 1)
Quarter: 2014Q2

REPORT INFORMATION
  Report Type: Spontaneous
  Country: US (occurrence: US)
  Receive Date: 20140624
  Receipt Date: 20140624
  Transmission Date: 20141212
  Serious: No
  Sender: FDA-Public Use
  Company Number: US-GILEAD-2014-0106574

PATIENT
  Age: 82 Year
  Sex: Female

DRUGS (9)
  1. LETAIRIS [Suspect]
     Indication: PULMONARY ARTERIAL HYPERTENSION
     Dosage: 5 MG, QD
     Route: 065
     Dates: start: 20140123
  2. LASIX                              /00032601/ [Concomitant]
  3. NITROSTAT [Concomitant]
  4. ASPIRIN [Concomitant]
  5. CRESTOR [Concomitant]
  6. LOSARTAN [Concomitant]
  7. PLENDIL [Concomitant]
  8. METOPROLOL [Concomitant]
  9. OMEPRAZOLE [Concomitant]

REACTIONS (1)
  - Urinary tract infection [Not Recovered/Not Resolved]
